FAERS Safety Report 23448411 (Version 3)
Quarter: 2024Q1

REPORT INFORMATION
  Report Type: Spontaneous
  Country: US (occurrence: US)
  Receive Date: 20240127
  Receipt Date: 20240329
  Transmission Date: 20240409
  Serious: No
  Sender: FDA-Public Use
  Company Number: US-JNJFOC-20240166284

PATIENT
  Age: 74 Year
  Sex: Male

DRUGS (6)
  1. TALVEY [Suspect]
     Active Substance: TALQUETAMAB-TGVS
     Indication: Product used for unknown indication
     Dosage: APPROXIMATELY 31 MG
     Route: 065
     Dates: start: 20240115
  2. FINASTERIDE [Concomitant]
     Active Substance: FINASTERIDE
     Indication: Benign prostatic hyperplasia
     Route: 065
     Dates: start: 2010
  3. DOXAZOSIN [Concomitant]
     Active Substance: DOXAZOSIN MESYLATE
     Indication: Benign prostatic hyperplasia
     Route: 065
     Dates: start: 2010
  4. LYRICA [Concomitant]
     Active Substance: PREGABALIN
     Indication: Neuropathy peripheral
     Route: 065
     Dates: start: 2017
  5. VITAMIN D3 [Concomitant]
     Active Substance: CHOLECALCIFEROL
     Indication: Bone disorder
     Route: 065
     Dates: start: 2017
  6. CALCIUM [Concomitant]
     Active Substance: CALCIUM
     Indication: Bone disorder
     Route: 065
     Dates: start: 2017

REACTIONS (4)
  - Ageusia [Not Recovered/Not Resolved]
  - Nail disorder [Unknown]
  - Nail discolouration [Unknown]
  - Skin exfoliation [Unknown]

NARRATIVE: CASE EVENT DATE: 20240101
